FAERS Safety Report 16468798 (Version 1)
Quarter: 2019Q3

REPORT INFORMATION
  Report Type: Spontaneous
  Country: US (occurrence: US)
  Receive Date: 20190621
  Receipt Date: 20190621
  Transmission Date: 20191004
  Serious: Yes (Hospitalization)
  Sender: FDA-Public Use
  Company Number: None

PATIENT
  Age: 76 Year
  Sex: Female
  Weight: 47.7 kg

DRUGS (6)
  1. NORTIPTYLINE [Concomitant]
     Active Substance: NORTRIPTYLINE
  2. VITAMIN D [Concomitant]
     Active Substance: VITAMIN D NOS
  3. DULCOLAX (BISACODYL) [Suspect]
     Active Substance: BISACODYL
     Indication: BOWEL PREPARATION
     Dosage: ?          QUANTITY:2 TABLET(S);OTHER FREQUENCY:ONCE;?
     Route: 048
     Dates: start: 20190605, end: 20190605
  4. LEVOTHYROXIN [Concomitant]
     Active Substance: LEVOTHYROXINE
  5. CALCIUM [Concomitant]
     Active Substance: CALCIUM
  6. OCUVITE [Concomitant]
     Active Substance: VITAMINS

REACTIONS (11)
  - Syncope [None]
  - Haematochezia [None]
  - Colitis [None]
  - Blood potassium decreased [None]
  - Hyperhidrosis [None]
  - Abdominal pain [None]
  - Chills [None]
  - Diarrhoea [None]
  - Dehydration [None]
  - Emotional distress [None]
  - Blood pressure decreased [None]

NARRATIVE: CASE EVENT DATE: 20190606
